FAERS Safety Report 22653037 (Version 1)
Quarter: 2023Q2

REPORT INFORMATION
  Report Type: Report from Study
  Country: CO (occurrence: CO)
  Receive Date: 20230629
  Receipt Date: 20230629
  Transmission Date: 20230721
  Serious: Yes (Hospitalization)
  Sender: FDA-Public Use
  Company Number: CO-UCBSA-2023024099

PATIENT
  Age: 61 Year
  Sex: Female

DRUGS (4)
  1. CERTOLIZUMAB PEGOL [Suspect]
     Active Substance: CERTOLIZUMAB PEGOL
     Indication: Rheumatoid arthritis
     Dosage: 400 MILLIGRAM, 30 DAYS
     Route: 058
     Dates: start: 20190920, end: 20220816
  2. CERTOLIZUMAB PEGOL [Suspect]
     Active Substance: CERTOLIZUMAB PEGOL
     Dosage: 400 MILLIGRAM, 30 DAYS
     Route: 058
     Dates: start: 20221130, end: 20230315
  3. CERTOLIZUMAB PEGOL [Suspect]
     Active Substance: CERTOLIZUMAB PEGOL
     Dosage: 400 MILLIGRAM, 45 DAYS
     Route: 058
     Dates: start: 20221130, end: 20230315
  4. CERTOLIZUMAB PEGOL [Suspect]
     Active Substance: CERTOLIZUMAB PEGOL
     Dosage: 400 MILLIGRAM, MONTHLY (QM)
     Route: 058
     Dates: start: 20230517, end: 20230517

REACTIONS (4)
  - Liver disorder [Unknown]
  - Influenza [Recovered/Resolved]
  - Peripheral swelling [Unknown]
  - Off label use [Unknown]

NARRATIVE: CASE EVENT DATE: 20221130
